FAERS Safety Report 5470477-1 (Version None)
Quarter: 2007Q3

REPORT INFORMATION
  Report Type: 
  Country: None (occurrence: None)
  Receive Date: 20070820
  Receipt Date: 20070511
  Transmission Date: 20080115
  Serious: No
  Sender: FDA-Public Use
  Company Number: WAES 0705USA02408

PATIENT
  Sex: Female

DRUGS (2)
  1. JANUVIA [Suspect]
     Indication: TYPE 2 DIABETES MELLITUS
     Dosage: PO
     Route: 048
     Dates: start: 20070311
  2. [THERAPY UNSPECIFIED] [Concomitant]

REACTIONS (3)
  - ABDOMINAL DISTENSION [None]
  - OEDEMA [None]
  - WEIGHT INCREASED [None]
